FAERS Safety Report 4273320-1 (Version None)
Quarter: 2004Q1

REPORT INFORMATION
  Report Type: 
  Country: None (occurrence: None)
  Receive Date: 20040119
  Receipt Date: 20040108
  Transmission Date: 20041129
  Serious: Yes (Hospitalization)
  Sender: FDA-Public Use
  Company Number: 200410140US

PATIENT
  Age: 51 Year
  Sex: Female
  Weight: 65 kg

DRUGS (17)
  1. ARAVA [Suspect]
     Indication: POLYARTHRITIS
     Route: 048
  2. WARFARIN SODIUM [Concomitant]
  3. PLAQUENIL [Concomitant]
  4. FOLIC ACID [Concomitant]
  5. FERROUS SULFATE TAB [Concomitant]
  6. VIOXX [Concomitant]
  7. PREVACID [Concomitant]
     Route: 048
  8. SSRI [Concomitant]
  9. POTASSIUM CHLORIDE [Concomitant]
  10. ACTONEL [Concomitant]
  11. NORVASC [Concomitant]
  12. LOPRESSOR [Concomitant]
  13. VALTREX [Concomitant]
  14. DURAGESIC [Concomitant]
     Route: 061
  15. PREDNISONE [Concomitant]
  16. MULTIVITAMINS, PLAIN [Concomitant]
  17. CALCIUM [Concomitant]

REACTIONS (17)
  - ALANINE AMINOTRANSFERASE INCREASED [None]
  - ASPARTATE AMINOTRANSFERASE INCREASED [None]
  - BLOOD ALKALINE PHOSPHATASE INCREASED [None]
  - BLOOD BILIRUBIN INCREASED [None]
  - BLOOD LACTATE DEHYDROGENASE INCREASED [None]
  - GAMMA-GLUTAMYLTRANSFERASE INCREASED [None]
  - HAEMATOCRIT DECREASED [None]
  - HAEMOGLOBIN DECREASED [None]
  - HEPATOMEGALY [None]
  - MALAISE [None]
  - MARKEDLY REDUCED DIETARY INTAKE [None]
  - MYALGIA [None]
  - NAUSEA [None]
  - PLATELET COUNT DECREASED [None]
  - RED BLOOD CELL SEDIMENTATION RATE INCREASED [None]
  - VOMITING [None]
  - WHITE BLOOD CELL COUNT INCREASED [None]
